FAERS Safety Report 6884337-2 (Version None)
Quarter: 2010Q3

REPORT INFORMATION
  Report Type: 
  Country: None (occurrence: None)
  Receive Date: 20100729
  Receipt Date: 20070702
  Transmission Date: 20110219
  Serious: Yes (Other)
  Sender: FDA-Public Use
  Company Number: US-PFIZER INC-2007054560

PATIENT
  Sex: Male

DRUGS (2)
  1. CELEBREX [Suspect]
     Route: 048
     Dates: start: 20010101
  2. BEXTRA [Suspect]
     Route: 048
     Dates: start: 20020901

REACTIONS (2)
  - ACUTE MYOCARDIAL INFARCTION [None]
  - ANXIETY [None]
